FAERS Safety Report 15558313 (Version 1)
Quarter: 2018Q4

REPORT INFORMATION
  Report Type: Spontaneous
  Country: US (occurrence: US)
  Receive Date: 20181028
  Receipt Date: 20181028
  Transmission Date: 20190205
  Serious: No
  Sender: FDA-Public Use
  Company Number: US-JNJFOC-20181001215

PATIENT
  Age: 69 Year
  Sex: Female
  Weight: 63.5 kg

DRUGS (2)
  1. ZYRTEC [Suspect]
     Active Substance: CETIRIZINE HYDROCHLORIDE
     Indication: MULTIPLE ALLERGIES
     Dosage: 1 TABLET ONCE
     Route: 048
     Dates: start: 20180927
  2. ZYRTEC [Suspect]
     Active Substance: CETIRIZINE HYDROCHLORIDE
     Indication: UPPER-AIRWAY COUGH SYNDROME
     Dosage: 1 TABLET ONCE
     Route: 048
     Dates: start: 20180927

REACTIONS (2)
  - Hypersomnia [Recovered/Resolved]
  - Product use in unapproved indication [Unknown]

NARRATIVE: CASE EVENT DATE: 20180927
